FAERS Safety Report 18194043 (Version 1)
Quarter: 2020Q3

REPORT INFORMATION
  Report Type: Spontaneous
  Country: FR (occurrence: FR)
  Receive Date: 20200825
  Receipt Date: 20200825
  Transmission Date: 20201103
  Serious: Yes (Hospitalization)
  Sender: FDA-Public Use
  Company Number: NVSC2020FR230403

PATIENT
  Age: 60 Year
  Sex: Male
  Weight: 61 kg

DRUGS (6)
  1. ZOPHREN 8 MG, LYOPHILISAT ORAL [Suspect]
     Active Substance: ONDANSETRON HYDROCHLORIDE
     Indication: PROPHYLAXIS OF NAUSEA AND VOMITING
     Dosage: 1 DF (TOTAL)
     Route: 048
     Dates: start: 20200603, end: 20200603
  2. PRIMPERAN [Suspect]
     Active Substance: METOCLOPRAMIDE HYDROCHLORIDE
     Indication: PROPHYLAXIS OF NAUSEA AND VOMITING
     Dosage: 2 DF, QD
     Route: 048
     Dates: start: 20200603, end: 20200603
  3. CARBOPLATINE [Suspect]
     Active Substance: CARBOPLATIN
     Indication: LUNG ADENOCARCINOMA
     Dosage: 420.5 MG (CYCLICAL)
     Route: 042
     Dates: start: 20200401, end: 20200603
  4. ALIMTA [Suspect]
     Active Substance: PEMETREXED DISODIUM
     Indication: LUNG ADENOCARCINOMA
     Dosage: 635 MG, CYCLICAL
     Route: 041
     Dates: start: 20200401, end: 20200603
  5. EMEND [Suspect]
     Active Substance: APREPITANT
     Indication: PROPHYLAXIS OF NAUSEA AND VOMITING
     Dosage: 1 DF (TOTAL)
     Route: 048
     Dates: start: 20200603, end: 20200603
  6. KEYTRUDA [Suspect]
     Active Substance: PEMBROLIZUMAB
     Indication: LUNG ADENOCARCINOMA
     Dosage: 200 MG, TIW
     Route: 041
     Dates: start: 20200401, end: 20200603

REACTIONS (2)
  - Seizure [Recovered/Resolved]
  - Magnetic resonance imaging abnormal [Not Recovered/Not Resolved]

NARRATIVE: CASE EVENT DATE: 20200603
